FAERS Safety Report 7072470-4 (Version None)
Quarter: 2010Q4

REPORT INFORMATION
  Report Type: 
  Country: None (occurrence: None)
  Receive Date: 20101029
  Receipt Date: 20101022
  Transmission Date: 20110411
  Serious: Yes (Hospitalization)
  Sender: FDA-Public Use
  Company Number: PHHY2010US71191

PATIENT
  Sex: Female

DRUGS (10)
  1. OXCARBAZEPINE [Suspect]
     Dosage: UNK
  2. LIPITOR [Interacting]
     Dosage: UNK
  3. DETROL [Interacting]
     Dosage: UNK
  4. CLONAZEPAM [Interacting]
     Dosage: UNK
  5. CELEXA [Interacting]
     Dosage: UNK
  6. SEROQUEL [Interacting]
     Dosage: UNK
  7. SYNTHROID [Interacting]
     Dosage: UNK
  8. DIET FORMULATIONS [Interacting]
     Dosage: UNK
  9. ZOLPIDEM [Interacting]
     Dosage: UNK
  10. GLYBURIDE [Interacting]
     Dosage: UNK

REACTIONS (2)
  - CONVULSION [None]
  - DRUG INTERACTION [None]
